FAERS Safety Report 6156960-4 (Version None)
Quarter: 2009Q2

REPORT INFORMATION
  Report Type: 
  Country: None (occurrence: None)
  Receive Date: 20090416
  Receipt Date: 20090406
  Transmission Date: 20091009
  Serious: Yes (Other)
  Sender: FDA-Public Use
  Company Number: B0569665A

PATIENT
  Age: 65 Year
  Sex: Male

DRUGS (1)
  1. ROSIGLITAZONE [Suspect]
     Indication: DRUG USE FOR UNKNOWN INDICATION
     Route: 065

REACTIONS (5)
  - AZOTAEMIA [None]
  - DUODENAL ULCER HAEMORRHAGE [None]
  - FLUID OVERLOAD [None]
  - TUBULOINTERSTITIAL NEPHRITIS [None]
  - UPPER GASTROINTESTINAL HAEMORRHAGE [None]
